FAERS Safety Report 12876917 (Version 1)
Quarter: 2016Q4

REPORT INFORMATION
  Report Type: Spontaneous
  Country: US (occurrence: US)
  Receive Date: 20161024
  Receipt Date: 20161024
  Transmission Date: 20170207
  Serious: No
  Sender: FDA-Public Use
  Company Number: US-GLAXOSMITHKLINE-US2016155104

PATIENT
  Age: 79 Year
  Sex: Male

DRUGS (13)
  1. MUCINEX [Concomitant]
     Active Substance: GUAIFENESIN
  2. DIGOXIN. [Concomitant]
     Active Substance: DIGOXIN
  3. SPIRIVA [Concomitant]
     Active Substance: TIOTROPIUM BROMIDE MONOHYDRATE
  4. LASIX [Concomitant]
     Active Substance: FUROSEMIDE
  5. DALIRESP [Concomitant]
     Active Substance: ROFLUMILAST
  6. DILTIAZEM. [Concomitant]
     Active Substance: DILTIAZEM
  7. LATANOPROST OPHTHALMIC [Concomitant]
  8. VITAMIN C [Concomitant]
     Active Substance: ASCORBIC ACID
  9. FLOMAX (TAMSULOSIN) [Concomitant]
  10. PRADAXA [Concomitant]
     Active Substance: DABIGATRAN ETEXILATE MESYLATE
  11. AVODART [Suspect]
     Active Substance: DUTASTERIDE
     Indication: PROSTATOMEGALY
     Dosage: 0.5 MG, QD
     Route: 048
     Dates: start: 201604, end: 20161011
  12. SYMBICORT [Concomitant]
     Active Substance: BUDESONIDE\FORMOTEROL FUMARATE DIHYDRATE
  13. LIPITOR [Concomitant]
     Active Substance: ATORVASTATIN CALCIUM

REACTIONS (2)
  - Breast tenderness [Not Recovered/Not Resolved]
  - Breast swelling [Not Recovered/Not Resolved]

NARRATIVE: CASE EVENT DATE: 201609
